FAERS Safety Report 15274184 (Version 1)
Quarter: 2018Q3

REPORT INFORMATION
  Report Type: Spontaneous
  Country: US (occurrence: US)
  Receive Date: 20180814
  Receipt Date: 20180814
  Transmission Date: 20181010
  Serious: Yes (Hospitalization)
  Sender: FDA-Public Use
  Company Number: US-ASTELLAS-2018US035843

PATIENT
  Age: 58 Year
  Sex: Male

DRUGS (4)
  1. PENTAMIDINE [Concomitant]
     Active Substance: PENTAMIDINE
     Indication: PROPHYLAXIS
     Dosage: UNK UNK, UNKNOWN FREQ.
     Route: 065
  2. POSACONAZOLE [Concomitant]
     Active Substance: POSACONAZOLE
     Indication: PROPHYLAXIS
     Dosage: UNK UNK, UNKNOWN FREQ.
     Route: 065
  3. MICAFUNGIN [Suspect]
     Active Substance: MICAFUNGIN
     Indication: PROPHYLAXIS
     Dosage: UNK, UNKNOWN FREQ.
     Route: 065
  4. VALACYCLOVIR [Concomitant]
     Active Substance: VALACYCLOVIR HYDROCHLORIDE
     Indication: PROPHYLAXIS
     Dosage: UNK UNK, UNKNOWN FREQ.
     Route: 065

REACTIONS (6)
  - Pharyngeal inflammation [Unknown]
  - Oesophageal ulcer [Recovered/Resolved]
  - Product use in unapproved indication [Unknown]
  - Erosive duodenitis [Recovered/Resolved]
  - Aspergillosis oral [Unknown]
  - Thrombocytopenia [Unknown]
